FAERS Safety Report 4492450-2 (Version None)
Quarter: 2004Q4

REPORT INFORMATION
  Report Type: 
  Country: None (occurrence: None)
  Receive Date: 20041029
  Receipt Date: 20041019
  Transmission Date: 20050328
  Serious: Yes (Life-Threatening, Hospitalization, Disabling, Other)
  Sender: FDA-Public Use
  Company Number: 2004044672

PATIENT
  Age: 75 Year
  Sex: Male

DRUGS (13)
  1. SORTIS (ATORVASTATIN) [Suspect]
     Indication: HYPERLIPIDAEMIA
     Dosage: 10 MG (10 MG, 1 IN D), ORAL
     Route: 048
     Dates: start: 20020101, end: 20040419
  2. PHENYTOIN [Suspect]
     Indication: EPILEPSY
     Dosage: ORAL
     Route: 048
     Dates: end: 20040501
  3. ALL OTHER THERAPEUTIC PRODUCTS (ALL OTHER THERAPEUTIC PRODUCTS) [Concomitant]
  4. RANITIDINE HYDROCHLORIDE [Concomitant]
  5. ACETYLCYSTEINE [Concomitant]
  6. ASPIRIN [Concomitant]
  7. CANDESARTAN CILEXETIL (CANDESARTAN CILEXETIL) [Concomitant]
  8. GLIMEPIRIDE [Concomitant]
  9. CIPROFLOXACIN HCL [Concomitant]
  10. FUROSEMIDE [Concomitant]
  11. METAMIZOLE SODIUM (METAMAZILE SODIUM) [Concomitant]
  12. HEPARIN [Concomitant]
  13. HYDOCHLOROTHIAZIDE (HYDROCHLORTHIAZIDE) [Concomitant]

REACTIONS (20)
  - ACUTE RESPIRATORY DISTRESS SYNDROME [None]
  - ATRIAL FIBRILLATION [None]
  - BLOOD CREATINE PHOSPHOKINASE MB INCREASED [None]
  - BLOOD CREATININE INCREASED [None]
  - BLOOD GLUCOSE INCREASED [None]
  - BLOOD LACTATE DEHYDROGENASE INCREASED [None]
  - BLOOD POTASSIUM INCREASED [None]
  - BLOOD UREA INCREASED [None]
  - BRONCHOPNEUMONIA [None]
  - CEREBRAL HAEMORRHAGE [None]
  - CLOSTRIDIUM COLITIS [None]
  - DISTURBANCE IN ATTENTION [None]
  - EPILEPSY [None]
  - HAEMOGLOBIN DECREASED [None]
  - INTRACRANIAL PRESSURE INCREASED [None]
  - PNEUMONIA ASPIRATION [None]
  - RESPIRATORY FAILURE [None]
  - RHABDOMYOLYSIS [None]
  - STAPHYLOCOCCAL INFECTION [None]
  - ULCER HAEMORRHAGE [None]
